FAERS Safety Report 25739505 (Version 1)
Quarter: 2025Q3

REPORT INFORMATION
  Report Type: Report from Study
  Country: US (occurrence: US)
  Receive Date: 20250829
  Receipt Date: 20250829
  Transmission Date: 20251021
  Serious: No
  Sender: SUNOVION
  Company Number: US-SUMITOMO PHARMA SWITZERLAND GMBH-2025SPA010821

PATIENT
  Age: 68 Year
  Sex: Male

DRUGS (8)
  1. ORGOVYX [Suspect]
     Active Substance: RELUGOLIX
     Indication: Product used for unknown indication
     Route: 048
     Dates: start: 20240830, end: 20240830
  2. ORGOVYX [Suspect]
     Active Substance: RELUGOLIX
     Route: 048
  3. AMOXICILLIN\CLAVULANATE POTASSIUM [Concomitant]
     Active Substance: AMOXICILLIN\CLAVULANATE POTASSIUM
  4. LIPITOR [Concomitant]
     Active Substance: ATORVASTATIN CALCIUM
  5. LISINOPRIL [Concomitant]
     Active Substance: LISINOPRIL
  6. VITAMINS [Concomitant]
     Active Substance: VITAMINS
  7. WELLBUTRIN [Concomitant]
     Active Substance: BUPROPION HYDROCHLORIDE
  8. TADALAFIL [Concomitant]
     Active Substance: TADALAFIL

REACTIONS (1)
  - Hot flush [Unknown]

NARRATIVE: CASE EVENT DATE: 20250601
